FAERS Safety Report 6814236-3 (Version None)
Quarter: 2010Q3

REPORT INFORMATION
  Report Type: 
  Country: None (occurrence: None)
  Receive Date: 20100702
  Receipt Date: 20100623
  Transmission Date: 20110219
  Serious: Yes (Death, Hospitalization)
  Sender: FDA-Public Use
  Company Number: FR-JNJFOC-20100111697

PATIENT
  Age: 69 Year
  Sex: Male

DRUGS (14)
  1. REMICADE [Suspect]
     Indication: UVEITIS
     Route: 042
     Dates: start: 20090727, end: 20091125
  2. PLAVIX [Suspect]
     Indication: PRODUCT USED FOR UNKNOWN INDICATION
     Route: 048
  3. PLAVIX [Suspect]
     Route: 048
  4. H1N1 VACCINE [Concomitant]
     Indication: INFLUENZA IMMUNISATION
  5. H1N1 VACCINE [Concomitant]
     Dosage: 5TH INFUSION
  6. CORTICOSTEROID THERAPY (LONGTERM) [Concomitant]
  7. CORTICOSTEROID THERAPY (LONGTERM) [Concomitant]
  8. CORTICOSTEROID THERAPY (LONGTERM) [Concomitant]
  9. CORTICOSTEROID THERAPY (LONGTERM) [Concomitant]
  10. MOPRAL [Concomitant]
     Route: 048
  11. MOPRAL [Concomitant]
     Route: 048
  12. MOPRAL [Concomitant]
     Route: 048
  13. PRAZOSIN HCL [Concomitant]
     Indication: HYPERTENSION
     Route: 048
  14. PRAZOSIN HCL [Concomitant]
     Route: 048

REACTIONS (4)
  - BACTERIAL SEPSIS [None]
  - DRUG RASH WITH EOSINOPHILIA AND SYSTEMIC SYMPTOMS [None]
  - FEMORAL ARTERIAL STENOSIS [None]
  - LUNG DISORDER [None]
